FAERS Safety Report 16541460 (Version 4)
Quarter: 2019Q4

REPORT INFORMATION
  Report Type: Report from Study
  Country: UA (occurrence: UA)
  Receive Date: 20190708
  Receipt Date: 20191028
  Transmission Date: 20200122
  Serious: Yes (Hospitalization, Other)
  Sender: FDA-Public Use
  Company Number: UA-BAYER-2019-124924

PATIENT
  Age: 67 Year
  Sex: Male

DRUGS (34)
  1. COPANLISIB. [Suspect]
     Active Substance: COPANLISIB
     Indication: NON-HODGKIN^S LYMPHOMA
     Dosage: 60 MG, CYCLE 2
     Route: 042
     Dates: start: 20190508, end: 20190508
  2. BENDAMUSTINE [Suspect]
     Active Substance: BENDAMUSTINE
     Indication: NON-HODGKIN^S LYMPHOMA
     Dosage: 175 MG, CYCLE 1
     Route: 042
     Dates: start: 20190410, end: 20190410
  3. BENDAMUSTINE [Suspect]
     Active Substance: BENDAMUSTINE
     Indication: NON-HODGKIN^S LYMPHOMA
     Dosage: 90 MG, CYCLE 2
     Route: 042
     Dates: start: 20190509, end: 20190509
  4. BENDAMUSTINE [Suspect]
     Active Substance: BENDAMUSTINE
     Indication: NON-HODGKIN^S LYMPHOMA
     Dosage: 90 MG, CYCLE 3
     Route: 042
     Dates: start: 20190606, end: 20190606
  5. ENALAPRIL [Concomitant]
     Active Substance: ENALAPRIL
     Indication: ESSENTIAL HYPERTENSION
     Dosage: 10 MG, BID
     Route: 048
     Dates: start: 20170904
  6. VEROSPIRON [Concomitant]
     Active Substance: SPIRONOLACTONE
     Indication: PROPHYLAXIS
     Dosage: 50 MG, QD
     Dates: start: 20190326
  7. SIOFOR [Concomitant]
     Active Substance: METFORMIN HYDROCHLORIDE
     Indication: METABOLIC DISORDER PROPHYLAXIS
     Dosage: 500 MG, BID
     Route: 048
     Dates: start: 20190417
  8. RITUXIMAB. [Suspect]
     Active Substance: RITUXIMAB
     Indication: NON-HODGKIN^S LYMPHOMA
     Dosage: 728 MG, CYCLE 2
     Route: 042
     Dates: start: 20190508, end: 20190508
  9. RITUXIMAB. [Suspect]
     Active Substance: RITUXIMAB
     Indication: NON-HODGKIN^S LYMPHOMA
     Dosage: 325 MG, CYCLE 3
     Route: 042
     Dates: start: 20190605, end: 20190605
  10. PARACETAMOL [Concomitant]
     Active Substance: ACETAMINOPHEN
     Indication: PREMEDICATION
     Dosage: 1000 MG
     Route: 048
     Dates: start: 20190410
  11. STEROFUNDIN [Concomitant]
     Active Substance: CALCIUM CHLORIDE\MAGNESIUM CHLORIDE\POTASSIUM CHLORIDE\SODIUM ACETATE\SODIUM CHLORIDE
     Indication: HYPERGLYCAEMIA
     Dosage: 500 ML, QD
     Route: 042
     Dates: start: 20190411, end: 20190412
  12. COPANLISIB. [Suspect]
     Active Substance: COPANLISIB
     Indication: NON-HODGKIN^S LYMPHOMA
     Dosage: 30 MG, CYCLE 1
     Route: 042
     Dates: start: 20190410, end: 20190410
  13. DEXAMETHASONE. [Concomitant]
     Active Substance: DEXAMETHASONE
     Indication: PREMEDICATION
     Dosage: 8 MG
     Route: 042
     Dates: start: 20190410
  14. ACICLOVIR [Concomitant]
     Active Substance: ACYCLOVIR
     Indication: ANTIVIRAL PROPHYLAXIS
     Dosage: 400 MG, BID
     Route: 048
     Dates: start: 20190410
  15. BISEPTOL [Concomitant]
     Active Substance: SULFAMETHOXAZOLE\TRIMETHOPRIM
     Indication: ANTIBIOTIC PROPHYLAXIS
     Dosage: 480 MG, QD
     Route: 048
     Dates: start: 20190410
  16. NIFEDIPIN [Concomitant]
     Active Substance: NIFEDIPINE
     Indication: HYPERTENSION
     Dosage: 2 MG, ONCE
     Route: 048
     Dates: start: 20190410
  17. COPANLISIB. [Suspect]
     Active Substance: COPANLISIB
     Indication: NON-HODGKIN^S LYMPHOMA
     Dosage: 60 MG, CYCLE 1
     Route: 042
     Dates: start: 20190424, end: 20190424
  18. BENDAMUSTINE [Suspect]
     Active Substance: BENDAMUSTINE
     Indication: NON-HODGKIN^S LYMPHOMA
     Dosage: 180 MG, CYCLE 2
     Route: 042
     Dates: start: 20190508, end: 20190508
  19. BENDAMUSTINE [Suspect]
     Active Substance: BENDAMUSTINE
     Indication: NON-HODGKIN^S LYMPHOMA
     Dosage: 90 MG, CYCLE 3
     Route: 042
     Dates: start: 20190605, end: 20190605
  20. REOSORBILACT [Concomitant]
     Indication: HYPERGLYCAEMIA
     Dosage: 200 MG, QD
     Route: 042
     Dates: start: 20190411, end: 20190413
  21. INSULIN [Concomitant]
     Active Substance: INSULIN NOS
     Indication: HYPERGLYCAEMIA
     Dosage: 4 IU, QID
     Dates: start: 20190411, end: 20190411
  22. RITUXIMAB. [Suspect]
     Active Substance: RITUXIMAB
     Indication: NON-HODGKIN^S LYMPHOMA
     Dosage: 728 MG, CYCLE 1
     Route: 042
     Dates: start: 20190410, end: 20190410
  23. BENDAMUSTINE [Suspect]
     Active Substance: BENDAMUSTINE
     Indication: NON-HODGKIN^S LYMPHOMA
     Dosage: 175 MG, CYCLE 1
     Route: 042
     Dates: start: 20190411, end: 20190411
  24. ONDANSETRON [Concomitant]
     Active Substance: ONDANSETRON
     Indication: PREMEDICATION
     Dosage: 8 MG
     Route: 042
     Dates: start: 20190410
  25. COPANLISIB. [Suspect]
     Active Substance: COPANLISIB
     Indication: NON-HODGKIN^S LYMPHOMA
     Dosage: 45 MG, CYCLE 3
     Dates: start: 20190605, end: 20190605
  26. ALLOPURINOL. [Concomitant]
     Active Substance: ALLOPURINOL
     Indication: NEOPLASM PROPHYLAXIS
     Dosage: 1 DF, TID
     Route: 048
     Dates: start: 20190410
  27. NIFEDIPIN [Concomitant]
     Active Substance: NIFEDIPINE
     Indication: HYPERTENSION
     Dosage: 2 MG, ONCE
     Route: 048
     Dates: start: 20190508
  28. HEPTRAL [ADEMETIONINE] [Concomitant]
     Indication: ANTIVIRAL PROPHYLAXIS
     Dosage: 500 ML, QD
     Route: 042
     Dates: start: 20190412, end: 20190413
  29. COPANLISIB. [Suspect]
     Active Substance: COPANLISIB
     Indication: NON-HODGKIN^S LYMPHOMA
     Dosage: 60 MG, CYCLE 1
     Route: 042
     Dates: start: 20190417, end: 20190417
  30. ASPIRIN CARDIO 100 MG [Concomitant]
     Active Substance: ASPIRIN
     Indication: THROMBOSIS PROPHYLAXIS
     Dosage: 10 MG, QD
     Route: 048
     Dates: start: 20190326
  31. REOSORBILACT [Concomitant]
     Indication: HYPERGLYCAEMIA
     Dosage: 200 MG, QD
     Route: 042
     Dates: start: 20190418, end: 20190418
  32. DIMEDROL [Concomitant]
     Active Substance: DIPHENHYDRAMINE
     Indication: PREMEDICATION
     Dosage: 50 MG
     Route: 042
     Dates: start: 20190410
  33. NIFEDIPIN [Concomitant]
     Active Substance: NIFEDIPINE
     Indication: HYPERTENSION
     Dosage: 2 MG, ONCE
     Route: 048
     Dates: start: 20190605
  34. HEPTRAL [ADEMETIONINE] [Concomitant]
     Indication: ANTIVIRAL PROPHYLAXIS
     Dosage: 500 ML, QD
     Route: 042
     Dates: start: 20190605

REACTIONS (2)
  - Cytomegalovirus infection [Recovered/Resolved]
  - Cytomegalovirus infection [Recovered/Resolved]

NARRATIVE: CASE EVENT DATE: 20190627
